FAERS Safety Report 7945995-4 (Version None)
Quarter: 2011Q4

REPORT INFORMATION
  Report Type: 
  Country: None (occurrence: None)
  Receive Date: 20111129
  Receipt Date: 20111121
  Transmission Date: 20120403
  Serious: Yes (Other)
  Sender: FDA-Public Use
  Company Number: US-CELGENEUS-163-21880-11113024

PATIENT
  Sex: Male
  Weight: 98.972 kg

DRUGS (6)
  1. PLAVIX [Concomitant]
     Dosage: 75 MILLIGRAM
     Route: 065
  2. REVLIMID [Suspect]
     Dosage: 10 MILLIGRAM
     Route: 048
     Dates: start: 20110501, end: 20110101
  3. NEURONTIN [Concomitant]
     Dosage: 800 MILLIGRAM
     Route: 065
  4. NORVASC [Concomitant]
     Dosage: 5 MILLIGRAM
     Route: 065
  5. VICODIN [Concomitant]
     Dosage: 5/500MG
     Route: 065
  6. ZOCOR [Concomitant]
     Dosage: 5 MILLIGRAM
     Route: 065

REACTIONS (2)
  - RENAL DISORDER [None]
  - CONFUSIONAL STATE [None]
